FAERS Safety Report 6771403-5 (Version None)
Quarter: 2010Q2

REPORT INFORMATION
  Report Type: 
  Country: None (occurrence: None)
  Receive Date: 20100616
  Receipt Date: 20100611
  Transmission Date: 20101027
  Serious: Yes (Other)
  Sender: FDA-Public Use
  Company Number: US-RB-011278-10

PATIENT
  Age: 69 Year
  Sex: Male

DRUGS (2)
  1. SUBOXONE [Suspect]
     Indication: PAIN
     Dosage: 12-16 MG/DAY
     Route: 060
     Dates: start: 20090601
  2. SUBOXONE [Suspect]
     Dosage: 12-16 MG/DAY
     Route: 060
     Dates: start: 20090601

REACTIONS (1)
  - CEREBROVASCULAR ACCIDENT [None]
